FAERS Safety Report 20634220 (Version 4)
Quarter: 2023Q1

REPORT INFORMATION
  Report Type: Report from Study
  Country: CA (occurrence: CA)
  Receive Date: 20220324
  Receipt Date: 20230314
  Transmission Date: 20230417
  Serious: Yes (Hospitalization, Other)
  Sender: FDA-Public Use
  Company Number: CA-JNJFOC-20220343412

PATIENT
  Age: 64 Year
  Sex: Female

DRUGS (2)
  1. SIMPONI [Suspect]
     Active Substance: GOLIMUMAB
     Indication: Rheumatoid arthritis
     Dosage: TREATMENT WAS NOT PART OF THE CAR-T THERAPY PATHWAY
     Route: 058
     Dates: start: 20140719, end: 20211225
  2. SIMPONI [Suspect]
     Active Substance: GOLIMUMAB
     Dosage: RESTART AUGUST 2022 FOLLOWING 2022 (CHEMO/ RADIATION) TREATMENT PREVIOUSLY REPORTED IN MARCH 2022
     Route: 058
     Dates: start: 20220725

REACTIONS (4)
  - Anal squamous cell carcinoma [Recovered/Resolved]
  - Rib fracture [Recovering/Resolving]
  - Radiation proctitis [Unknown]
  - Radiation injury [Unknown]

NARRATIVE: CASE EVENT DATE: 20220318
